FAERS Safety Report 17406868 (Version 1)
Quarter: 2020Q1

REPORT INFORMATION
  Report Type: Spontaneous
  Country: US (occurrence: US)
  Receive Date: 20200211
  Receipt Date: 20200211
  Transmission Date: 20200409
  Serious: Yes (Hospitalization, Disabling)
  Sender: FDA-Public Use
  Company Number: None

PATIENT
  Age: 59 Year
  Sex: Female
  Weight: 112.5 kg

DRUGS (2)
  1. TAKING MAGNESIUM AND PROBIOTICS [Concomitant]
  2. LEVAQUIN [Suspect]
     Active Substance: LEVOFLOXACIN

REACTIONS (10)
  - Muscle atrophy [None]
  - Lymphoedema [None]
  - Tendon disorder [None]
  - Fibromyalgia [None]
  - Mobility decreased [None]
  - Chondropathy [None]
  - Neuropathy peripheral [None]
  - Hip arthroplasty [None]
  - Pain [None]
  - Bladder disorder [None]

NARRATIVE: CASE EVENT DATE: 20171028
